FAERS Safety Report 16670241 (Version 1)
Quarter: 2019Q3

REPORT INFORMATION
  Report Type: Report from Study
  Country: KR (occurrence: KR)
  Receive Date: 20190805
  Receipt Date: 20190805
  Transmission Date: 20191004
  Serious: Yes (Hospitalization, Other)
  Sender: FDA-Public Use
  Company Number: KR-TAKEDA-2018TUS034280

PATIENT
  Age: 21 Year
  Sex: Male
  Weight: 54.5 kg

DRUGS (8)
  1. VORTIOXETINE. [Suspect]
     Active Substance: VORTIOXETINE
     Dosage: 10 MILLIGRAM, QD
     Route: 048
     Dates: start: 20170529, end: 20170907
  2. PRISTIQ EXTENDED-RELEASE [Suspect]
     Active Substance: DESVENLAFAXINE SUCCINATE
     Indication: MAJOR DEPRESSION
     Dosage: 50 MILLIGRAM, BID
     Route: 048
     Dates: start: 20170315, end: 20170521
  3. METOCLOPRAMIDE. [Suspect]
     Active Substance: METOCLOPRAMIDE
     Indication: DYSPEPSIA
     Dosage: 5 MILLIGRAM, QD
     Route: 048
     Dates: start: 20170424, end: 20170521
  4. TRESTAN                            /00056201/ [Suspect]
     Active Substance: CYANOCOBALAMIN
     Indication: DECREASED APPETITE
     Dosage: UNK
     Route: 048
     Dates: start: 20170109, end: 20170907
  5. MOSAPRIDE [Suspect]
     Active Substance: MOSAPRIDE
     Indication: GASTRITIS
     Dosage: 5 MILLIGRAM, QD
     Route: 048
     Dates: start: 20170424, end: 20170907
  6. LORAZEPAM. [Suspect]
     Active Substance: LORAZEPAM
     Indication: ANXIETY
     Dosage: 0.5 MILLIGRAM, QD
     Route: 048
     Dates: start: 20170424, end: 20170907
  7. CONJUGATED ESTROGENS [Suspect]
     Active Substance: ESTROGENS, CONJUGATED
     Indication: GENDER DYSPHORIA
     Dosage: 1.25 MILLIGRAM, QD
     Route: 048
     Dates: start: 20161031, end: 20170521
  8. VORTIOXETINE. [Suspect]
     Active Substance: VORTIOXETINE
     Indication: MAJOR DEPRESSION
     Dosage: 5 MILLIGRAM, QD
     Route: 048
     Dates: start: 20170410, end: 20170528

REACTIONS (4)
  - Intentional self-injury [Recovered/Resolved]
  - Skin laceration [Recovered/Resolved]
  - Nausea [Recovering/Resolving]
  - Nasal polyps [Recovered/Resolved]

NARRATIVE: CASE EVENT DATE: 20170522
